FAERS Safety Report 5001009-X (Version None)
Quarter: 2006Q2

REPORT INFORMATION
  Report Type: 
  Country: None (occurrence: None)
  Receive Date: 20060512
  Receipt Date: 20060510
  Transmission Date: 20061013
  Serious: Yes (Life-Threatening, Hospitalization, Disabling, Other)
  Sender: FDA-Public Use
  Company Number: US-GLAXOSMITHKLINE-A0605080A

PATIENT
  Age: 55 Year
  Sex: Female

DRUGS (2)
  1. DEXEDRINE [Suspect]
     Indication: DEPRESSION
     Dosage: 10MG PER DAY
     Route: 048
  2. PROZAC [Concomitant]

REACTIONS (1)
  - CEREBROVASCULAR ACCIDENT [None]
